FAERS Safety Report 9160282 (Version 1)
Quarter: 2013Q1

REPORT INFORMATION
  Report Type: Spontaneous
  Country: US (occurrence: None)
  Receive Date: 20130220
  Receipt Date: 20130220
  Transmission Date: 20140127
  Serious: Yes (Other)
  Sender: FDA-Public Use
  Company Number: US-1196654

PATIENT
  Sex: Female

DRUGS (6)
  1. TOBRADEX OPHTHALMIC SUSPENSION (TOBRADEX SUSPENSION) [Suspect]
     Indication: EYE INFECTION
     Dosage: ONE DROP, THREE TIMES PER DAY.
     Route: 047
     Dates: start: 201110, end: 2012
  2. TOBRADEX OPHTHALMIC SUSPENSION (TOBRADEX SUSPENSION) [Suspect]
     Indication: OCULAR ROSACEA
     Dosage: ONE DROP, THREE TIMES PER DAY.
     Route: 047
     Dates: start: 201110, end: 2012
  3. ACYCLOVIR [Concomitant]
  4. ZIRGAN [Concomitant]
  5. REFRESH PM [Concomitant]
  6. REFRESH OPTIVE [Concomitant]

REACTIONS (2)
  - Herpes ophthalmic [None]
  - Photophobia [None]
